FAERS Safety Report 6885123-X (Version None)
Quarter: 2010Q3

REPORT INFORMATION
  Report Type: 
  Country: None (occurrence: None)
  Receive Date: 20100729
  Receipt Date: 20071206
  Transmission Date: 20110219
  Serious: Yes (Other)
  Sender: FDA-Public Use
  Company Number: US-PFIZER INC-2007088573

PATIENT
  Sex: Female
  Weight: 65.8 kg

DRUGS (6)
  1. CELEBREX [Suspect]
     Indication: PAIN
     Route: 048
     Dates: start: 20070906
  2. DIOVAN HCT [Concomitant]
  3. MAXZIDE [Concomitant]
  4. GLUCOSAMINE [Concomitant]
  5. METHYLSULFONYLMETHANE [Concomitant]
  6. VICODIN [Concomitant]

REACTIONS (1)
  - HAEMATOCHEZIA [None]
